FAERS Safety Report 16820934 (Version 3)
Quarter: 2020Q1

REPORT INFORMATION
  Report Type: Report from Study
  Country: US (occurrence: US)
  Receive Date: 20190918
  Receipt Date: 20200203
  Transmission Date: 20200409
  Serious: Yes (Other)
  Sender: FDA-Public Use
  Company Number: US-ROCHE-2406315

PATIENT
  Age: 88 Year
  Sex: Female

DRUGS (1)
  1. OCREVUS [Suspect]
     Active Substance: OCRELIZUMAB
     Indication: RELAPSING MULTIPLE SCLEROSIS
     Dosage: WITHIN MINIMUM 25 HOURS
     Route: 065
     Dates: start: 20190305

REACTIONS (9)
  - Headache [Not Recovered/Not Resolved]
  - Malaise [Not Recovered/Not Resolved]
  - Skin infection [Unknown]
  - Abdominal discomfort [Recovered/Resolved]
  - Dizziness [Not Recovered/Not Resolved]
  - Pyrexia [Recovered/Resolved]
  - Muscle twitching [Not Recovered/Not Resolved]
  - Pain in extremity [Not Recovered/Not Resolved]
  - Arthralgia [Not Recovered/Not Resolved]

NARRATIVE: CASE EVENT DATE: 20190305
